FAERS Safety Report 8892259 (Version 1)
Quarter: 2012Q4

REPORT INFORMATION
  Report Type: 
  Country: US (occurrence: US)
  Receive Date: 20121107
  Receipt Date: 20121107
  Transmission Date: 20130627
  Serious: No
  Sender: FDA-Public Use
  Company Number: US-AMGEN-USASP2011057658

PATIENT
  Age: 33 Year
  Sex: Female
  Weight: 160 kg

DRUGS (1)
  1. ENBREL [Suspect]
     Indication: RHEUMATOID ARTHRITIS
     Dosage: 50 mg, qwk
     Dates: start: 20090101

REACTIONS (9)
  - Hypoaesthesia [Unknown]
  - Burning sensation [Unknown]
  - Feeling cold [Unknown]
  - Pain [Unknown]
  - Contusion [Unknown]
  - Myalgia [Unknown]
  - Asthenia [Unknown]
  - Fatigue [Unknown]
  - Paraesthesia [Unknown]
